FAERS Safety Report 12053737 (Version 2)
Quarter: 2017Q1

REPORT INFORMATION
  Report Type: Spontaneous
  Country: CH (occurrence: CH)
  Receive Date: 20160209
  Receipt Date: 20170222
  Transmission Date: 20170428
  Serious: No
  Sender: FDA-Public Use
  Company Number: CH-PFIZER INC-2016048846

PATIENT

DRUGS (11)
  1. BETAMETHASONE. [Suspect]
     Active Substance: BETAMETHASONE
     Indication: MATERNAL THERAPY TO ENHANCE FOETAL LUNG MATURITY
     Dosage: UNK
     Route: 064
  2. MAGNESIUM [Suspect]
     Active Substance: MAGNESIUM
     Indication: CARDIAC FAILURE CONGESTIVE
     Dosage: UNK
     Route: 064
  3. ASPIRIN. [Suspect]
     Active Substance: ASPIRIN
     Indication: HEPARIN-INDUCED THROMBOCYTOPENIA
     Dosage: 100 MG, DAILY
     Route: 064
  4. AMOXICILLIN. [Suspect]
     Active Substance: AMOXICILLIN
     Indication: ANTIBIOTIC PROPHYLAXIS
     Dosage: UNK
     Route: 064
  5. FUROSEMIDE. [Suspect]
     Active Substance: FUROSEMIDE
     Indication: CARDIAC FAILURE CONGESTIVE
     Dosage: UNK
     Route: 064
  6. DALTEPARIN SODIUM [Suspect]
     Active Substance: DALTEPARIN SODIUM
     Dosage: 10000 IU, DAILY
     Route: 064
  7. FONDAPARINUX [Suspect]
     Active Substance: FONDAPARINUX
     Indication: HEPARIN-INDUCED THROMBOCYTOPENIA
     Dosage: 2.5 MG, UNK
     Route: 064
  8. POTASSIUM [Suspect]
     Active Substance: POTASSIUM
     Indication: CARDIAC FAILURE CONGESTIVE
     Dosage: UNK
     Route: 064
  9. HEPARIN [Suspect]
     Active Substance: HEPARIN SODIUM
     Indication: ANTICOAGULANT THERAPY
     Dosage: 15000 IU, DAILY
     Route: 064
  10. DIGOXIN. [Suspect]
     Active Substance: DIGOXIN
     Indication: CARDIAC FAILURE CONGESTIVE
     Dosage: UNK
     Route: 064
  11. NOREPINEPHRINE [Suspect]
     Active Substance: NOREPINEPHRINE\NOREPINEPHRINE BITARTRATE
     Dosage: UNK
     Route: 064

REACTIONS (1)
  - Maternal exposure during pregnancy [Unknown]
